FAERS Safety Report 8520194-6 (Version None)
Quarter: 2012Q3

REPORT INFORMATION
  Report Type: 
  Country: None (occurrence: None)
  Receive Date: 20120719
  Receipt Date: 20120710
  Transmission Date: 20120928
  Serious: Yes (Life-Threatening, Hospitalization)
  Sender: FDA-Public Use
  Company Number: CA-JNJFOC-20120705772

PATIENT
  Sex: Male
  Weight: 99.79 kg

DRUGS (2)
  1. REMICADE [Suspect]
     Indication: CROHN'S DISEASE
     Route: 042
     Dates: start: 20120424
  2. REMICADE [Suspect]
     Route: 042

REACTIONS (5)
  - HAEMORRHAGE [None]
  - ROAD TRAFFIC ACCIDENT [None]
  - PLASTIC SURGERY TO THE FACE [None]
  - TRAUMATIC LUNG INJURY [None]
  - SPLEEN DISORDER [None]
